FAERS Safety Report 6304274-1 (Version None)
Quarter: 2009Q3

REPORT INFORMATION
  Report Type: 
  Country: None (occurrence: None)
  Receive Date: 20090811
  Receipt Date: 20090731
  Transmission Date: 20100115
  Serious: Yes (Death)
  Sender: FDA-Public Use
  Company Number: US-PFIZER INC-2009207736

PATIENT
  Sex: Male

DRUGS (12)
  1. SUTENT [Suspect]
     Indication: RENAL CELL CARCINOMA
     Dosage: 50 MG, 4 WEEKS ON, 2 WEEKS OFF
  2. ZOCOR [Concomitant]
     Dosage: UNK
  3. ALLOPURINOL [Concomitant]
     Dosage: UNK
  4. FENTANYL [Concomitant]
     Dosage: 25 MCG PATCH
  5. LASIX [Concomitant]
     Dosage: 10 MG, DAILY
  6. ASPIRIN [Concomitant]
     Dosage: UNK
  7. NOVOLOG [Concomitant]
     Dosage: UNK
  8. GLYBURIDE [Concomitant]
     Dosage: 5 MG, DAILY
  9. SYNTHROID [Concomitant]
     Dosage: 100 MCG
  10. XANAX [Concomitant]
     Dosage: UNK
  11. LOPRESSOR [Concomitant]
     Dosage: UNK
  12. LISINOPRIL [Concomitant]
     Dosage: UNK

REACTIONS (1)
  - DEATH [None]
